FAERS Safety Report 7360416-0 (Version None)
Quarter: 2011Q1

REPORT INFORMATION
  Report Type: 
  Country: None (occurrence: None)
  Receive Date: 20110318
  Receipt Date: 20100601
  Transmission Date: 20110831
  Serious: No
  Sender: FDA-Public Use
  Company Number: US-BAYER-201024655NA

PATIENT
  Sex: Female

DRUGS (1)
  1. MIRENA [Suspect]
     Indication: CONTRACEPTION
     Dosage: 20 ?G/D, CONT
     Dates: start: 20051201, end: 20100527

REACTIONS (6)
  - GENITAL HAEMORRHAGE [None]
  - MUSCLE SPASMS [None]
  - TEARFULNESS [None]
  - LETHARGY [None]
  - IRRITABILITY [None]
  - FATIGUE [None]
